FAERS Safety Report 24367380 (Version 1)
Quarter: 2024Q3

REPORT INFORMATION
  Report Type: Spontaneous
  Country: US (occurrence: US)
  Receive Date: 20240926
  Receipt Date: 20240926
  Transmission Date: 20241016
  Serious: No
  Sender: B BRAUN
  Company Number: US-B.Braun Medical Inc.-2162100

PATIENT
  Age: 79 Year
  Sex: Female
  Weight: 67.727 kg

DRUGS (1)
  1. BUPIVACAINE HYDROCHLORIDE [Suspect]
     Active Substance: BUPIVACAINE HYDROCHLORIDE
     Indication: Spinal anaesthesia

REACTIONS (1)
  - Anaesthetic complication [Unknown]
